FAERS Safety Report 18769392 (Version 3)
Quarter: 2022Q2

REPORT INFORMATION
  Report Type: Spontaneous
  Country: US (occurrence: US)
  Receive Date: 20210121
  Receipt Date: 20220512
  Transmission Date: 20220721
  Serious: No
  Sender: FDA-Public Use
  Company Number: US-PFIZER INC-2021032991

PATIENT
  Age: 65 Year
  Sex: Male

DRUGS (1)
  1. XELJANZ XR [Suspect]
     Active Substance: TOFACITINIB CITRATE
     Indication: Rheumatoid arthritis
     Dosage: 11 MG, 1X/DAY
     Route: 048
     Dates: start: 202101

REACTIONS (8)
  - Drug ineffective [Unknown]
  - Therapeutic product effect incomplete [Unknown]
  - Sleep disorder [Recovered/Resolved]
  - Musculoskeletal stiffness [Unknown]
  - Joint injury [Unknown]
  - Arthralgia [Unknown]
  - Back pain [Unknown]
  - Pain in extremity [Recovering/Resolving]

NARRATIVE: CASE EVENT DATE: 20210101
